FAERS Safety Report 14373587 (Version 1)
Quarter: 2018Q1

REPORT INFORMATION
  Report Type: Not Available
  Country: US (occurrence: US)
  Receive Date: 20180110
  Receipt Date: 20180110
  Transmission Date: 20180509
  Serious: No
  Sender: FDA-Public Use
  Company Number: US-NEUROCRINE BIOSCIENCES INC.-2017NBI01366

PATIENT
  Age: 93 Year
  Sex: Female

DRUGS (1)
  1. INGREZZA [Suspect]
     Active Substance: VALBENAZINE
     Indication: PRODUCT USED FOR UNKNOWN INDICATION
     Route: 048
     Dates: start: 20171020, end: 20171023

REACTIONS (4)
  - Agitation [Unknown]
  - Erythema [Unknown]
  - Blood pressure increased [Unknown]
  - Somnolence [Unknown]

NARRATIVE: CASE EVENT DATE: 20171023
